FAERS Safety Report 5787832-2 (Version None)
Quarter: 2008Q2

REPORT INFORMATION
  Report Type: 
  Country: None (occurrence: None)
  Receive Date: 20080624
  Receipt Date: 20080624
  Transmission Date: 20081010
  Serious: Yes (Other)
  Sender: FDA-Public Use
  Company Number: None

PATIENT
  Age: 28 Year
  Sex: Male
  Weight: 90 kg

DRUGS (1)
  1. PROPECIA PROPECIA MERCK [Suspect]
     Indication: ANDROGENETIC ALOPECIA
     Dates: start: 20080611, end: 20080614

REACTIONS (7)
  - ANOREXIA [None]
  - CATATONIA [None]
  - DEPRESSION [None]
  - EXERCISE TOLERANCE DECREASED [None]
  - FATIGUE [None]
  - SOMNOLENCE [None]
  - SUICIDAL IDEATION [None]
